FAERS Safety Report 5356223-0 (Version None)
Quarter: 2007Q2

REPORT INFORMATION
  Report Type: 
  Country: None (occurrence: None)
  Receive Date: 20070612
  Receipt Date: 20070531
  Transmission Date: 20071010
  Serious: Yes (Other)
  Sender: FDA-Public Use
  Company Number: US-PFIZER INC-2007045777

PATIENT
  Sex: Male
  Weight: 90.909 kg

DRUGS (7)
  1. CHANTIX [Suspect]
     Indication: SMOKING CESSATION THERAPY
  2. WARFARIN SODIUM [Concomitant]
  3. VALSARTAN [Concomitant]
     Indication: HYPERTENSION
  4. LIPITOR [Concomitant]
  5. PLETAL [Concomitant]
  6. DRUG, UNSPECIFIED [Concomitant]
  7. ALL OTHER THERAPEUTIC PRODUCTS [Concomitant]
     Route: 031

REACTIONS (4)
  - DIPLOPIA [None]
  - INFECTION [None]
  - OPTIC NERVE DISORDER [None]
  - TRANSIENT ISCHAEMIC ATTACK [None]
